FAERS Safety Report 8760989 (Version 4)
Quarter: 2013Q2

REPORT INFORMATION
  Report Type: Report from Study
  Country: JP (occurrence: JP)
  Receive Date: 20120830
  Receipt Date: 20130408
  Transmission Date: 20140414
  Serious: Yes (Other)
  Sender: FDA-Public Use
  Company Number: JP-VERTEX PHARMACEUTICAL INC.-AE-2012-006839

PATIENT
  Age: 50 Year
  Sex: Female

DRUGS (22)
  1. VX-950 (TELAPREVIR) [Suspect]
     Indication: CHRONIC HEPATITIS C
     Dosage: 2250 MG, QD
     Route: 048
     Dates: start: 20120314, end: 20120501
  2. VX-950 (TELAPREVIR) [Suspect]
     Dosage: 1500 MG, QD
     Route: 048
     Dates: start: 20120502, end: 20120605
  3. RIBAVIRIN [Suspect]
     Indication: CHRONIC HEPATITIS C
     Dosage: 600 MG, QD
     Route: 048
     Dates: start: 20120314, end: 20120403
  4. RIBAVIRIN [Suspect]
     Dosage: 200 MG, QD
     Route: 048
     Dates: start: 20120404, end: 20120424
  5. RIBAVIRIN [Suspect]
     Dosage: 200 MG, QD
     Route: 048
     Dates: start: 20120424, end: 20120828
  6. PEGINTERFERON ALFA-2B [Suspect]
     Indication: CHRONIC HEPATITIS C
     Dosage: 1.5 ?G/KG, QW
     Route: 058
     Dates: start: 20120314, end: 20120425
  7. PEGINTERFERON ALFA-2B [Suspect]
     Dosage: 1.2 ?G/KG, QW
     Route: 058
     Dates: start: 20120502, end: 20120822
  8. ALOSENN [Concomitant]
     Dosage: 1 G, QD
     Route: 048
  9. ALOSENN [Concomitant]
     Dosage: 1.0 G, QD/PRN
     Route: 048
  10. LENDORMIN D [Concomitant]
     Dosage: 0.25 MG, QD
     Route: 048
  11. GASTER D [Concomitant]
     Dosage: 40 MG, QD
     Route: 048
     Dates: start: 20120314, end: 20120327
  12. NABOAL  SR [Concomitant]
     Dosage: 2 DF, QD
     Route: 048
     Dates: start: 20120314
  13. NABOAL  SR [Concomitant]
     Dosage: 2 DF, PRN
     Route: 048
  14. NABOAL  SR [Concomitant]
     Dosage: 1 DF, QD/PRN
     Route: 048
  15. NABOAL  SR [Concomitant]
     Dosage: 1 DF, QD
     Route: 048
     Dates: end: 20120515
  16. ZADITEN [Concomitant]
     Dosage: UNK, QD
     Route: 045
     Dates: start: 20120319, end: 20120326
  17. PL [Concomitant]
     Dosage: 3 DF, QD
     Route: 048
     Dates: start: 20120319, end: 20120321
  18. MYSLEE [Concomitant]
     Dosage: 5 MG, QD
     Route: 048
  19. DEPAS [Concomitant]
     Dosage: 3 MG, QD
     Route: 048
     Dates: start: 20120316
  20. SILECE [Concomitant]
     Dosage: 1 MG, QD
     Route: 048
     Dates: start: 20120316
  21. LUVOX [Concomitant]
     Dosage: 25 MG, QD
     Route: 048
  22. ANTEBATE [Concomitant]
     Dosage: UNK, QD
     Route: 061
     Dates: start: 20120822, end: 20120822

REACTIONS (2)
  - White blood cell count decreased [Recovered/Resolved]
  - Neutrophil count decreased [Recovered/Resolved]
